FAERS Safety Report 7592086-0 (Version None)
Quarter: 2011Q2

REPORT INFORMATION
  Report Type: 
  Country: None (occurrence: None)
  Receive Date: 20110628
  Receipt Date: 20110617
  Transmission Date: 20111010
  Serious: Yes (Other)
  Sender: FDA-Public Use
  Company Number: 2011SP028844

PATIENT
  Sex: Female

DRUGS (4)
  1. BENICAR [Concomitant]
  2. MIRALAX [Suspect]
     Indication: PRODUCT USED FOR UNKNOWN INDICATION
     Dosage: 17 GM;QD;PO
     Route: 048
     Dates: start: 20110608, end: 20110613
  3. TOPOROL [Concomitant]
  4. RYTHMOL [Concomitant]

REACTIONS (2)
  - BLOOD PRESSURE INCREASED [None]
  - OEDEMA PERIPHERAL [None]
